FAERS Safety Report 19484922 (Version 1)
Quarter: 2021Q3

REPORT INFORMATION
  Report Type: Other
  Country: CA (occurrence: CA)
  Receive Date: 20210702
  Receipt Date: 20210702
  Transmission Date: 20211014
  Serious: Yes (Death)
  Sender: FDA-Public Use
  Company Number: CA-CELLTRION INC.-2021CA008681

PATIENT

DRUGS (23)
  1. QUINAPRIL HYDROCHLORIDE. [Concomitant]
     Active Substance: QUINAPRIL HYDROCHLORIDE
  2. RITUXIMAB (UNKNOWN) [Suspect]
     Active Substance: RITUXIMAB
     Indication: RHEUMATOID ARTHRITIS
     Dosage: 1000 MG
     Route: 042
  3. APO?AZATHIOPRINE [Concomitant]
     Active Substance: AZATHIOPRINE
  4. NABILONE [Concomitant]
     Active Substance: NABILONE
  5. RISEDRONATE SODIUM. [Concomitant]
     Active Substance: RISEDRONATE SODIUM
  6. SOLU?CORTEF [Concomitant]
     Active Substance: HYDROCORTISONE SODIUM SUCCINATE
  7. ZINC. [Concomitant]
     Active Substance: ZINC
  8. ATORVASTATIN CALCIUM. [Concomitant]
     Active Substance: ATORVASTATIN CALCIUM
  9. LACTULOSE. [Concomitant]
     Active Substance: LACTULOSE
  10. METHADONE [Concomitant]
     Active Substance: METHADONE HYDROCHLORIDE
  11. DIPHENHYDRAMINE. [Concomitant]
     Active Substance: DIPHENHYDRAMINE
  12. MYCOPHENOLATE MOFETIL. [Concomitant]
     Active Substance: MYCOPHENOLATE MOFETIL
  13. PMS?CETIRIZINE [Concomitant]
     Active Substance: CETIRIZINE HYDROCHLORIDE
  14. APO?ZOPICLONE [Concomitant]
     Active Substance: ZOPICLONE
  15. CALCIUM [Concomitant]
     Active Substance: CALCIUM
  16. HYDROXYCHLOROQUINE [Concomitant]
     Active Substance: HYDROXYCHLOROQUINE
  17. MAGNESIUM [Concomitant]
     Active Substance: MAGNESIUM
  18. METHYLPREDNISOLONE. [Concomitant]
     Active Substance: METHYLPREDNISOLONE
  19. ACETAMINOPHEN. [Concomitant]
     Active Substance: ACETAMINOPHEN
  20. LEVEMIR [Concomitant]
     Active Substance: INSULIN DETEMIR
  21. APO?PREDNISONE [Concomitant]
     Active Substance: PREDNISONE
  22. LACTAID [Concomitant]
     Active Substance: LACTASE
  23. NOVORAPID [Concomitant]
     Active Substance: INSULIN ASPART

REACTIONS (1)
  - Death [Fatal]
